FAERS Safety Report 9748410 (Version 1)
Quarter: 2013Q4

REPORT INFORMATION
  Report Type: Report from Study
  Country: US (occurrence: US)
  Receive Date: 20131212
  Receipt Date: 20131212
  Transmission Date: 20140711
  Serious: Yes (Death)
  Sender: FDA-Public Use
  Company Number: PHEH2013US025624

PATIENT
  Age: 54 Year
  Sex: Male

DRUGS (14)
  1. GLEEVEC [Suspect]
     Indication: CHRONIC MYELOID LEUKAEMIA
     Dosage: 600 MG, DAILY
     Route: 048
     Dates: start: 20120828
  2. NORFLEX [Concomitant]
     Dosage: UNK UKN, UNK
  3. VALIUM [Concomitant]
     Dosage: UNK UKN, UNK
  4. PERCOCET [Concomitant]
     Dosage: UNK UKN, UNK
  5. PREDNISOLONE [Concomitant]
     Dosage: UNK UKN, UNK
  6. ANUCORT-HC [Concomitant]
     Dosage: UNK UKN, UNK
  7. TRICOR [Concomitant]
     Dosage: UNK UKN, UNK
  8. DIOVAN [Concomitant]
     Dosage: UNK UKN, UNK
  9. ZETIA [Concomitant]
     Dosage: UNK UKN, UNK
  10. KAPIDEX [Concomitant]
     Dosage: UNK UKN, UNK
  11. DICYCLOMINE [Concomitant]
     Dosage: UNK UKN, UNK
  12. HYDROXYUREA [Concomitant]
     Dosage: UNK UKN, UNK
  13. LEVOTHYROXINE [Concomitant]
     Dosage: UNK UKN, UNK
  14. CLONAZEPAM [Concomitant]
     Dosage: UNK UKN, UNK

REACTIONS (1)
  - Death [Fatal]
